FAERS Safety Report 5576092-3 (Version None)
Quarter: 2007Q4

REPORT INFORMATION
  Report Type: 
  Country: None (occurrence: None)
  Receive Date: 20071228
  Receipt Date: 20071226
  Transmission Date: 20080405
  Serious: Yes (Other)
  Sender: FDA-Public Use
  Company Number: BR-BRISTOL-MYERS SQUIBB COMPANY-14025217

PATIENT
  Age: 55 Year
  Sex: Female

DRUGS (1)
  1. RUBRANOVA [Suspect]
     Indication: VITAMIN B12 DEFICIENCY
     Dosage: 1 PER WEEK FOR 3 WEEKS ( 19-DEC ; 26-DEC AND 02-JAN )
     Route: 030
     Dates: start: 20071206

REACTIONS (3)
  - GASTRIC POLYPS [None]
  - NAUSEA [None]
  - RASH [None]
